FAERS Safety Report 8406578-5 (Version None)
Quarter: 2012Q2

REPORT INFORMATION
  Report Type: 
  Country: None (occurrence: None)
  Receive Date: 20120604
  Receipt Date: 20120525
  Transmission Date: 20120825
  Serious: Yes (Hospitalization, Other)
  Sender: FDA-Public Use
  Company Number: FR-JNJFOC-20120520386

PATIENT
  Age: 51 Year
  Sex: Male

DRUGS (2)
  1. STELARA [Suspect]
     Route: 058
  2. STELARA [Suspect]
     Indication: PRODUCT USED FOR UNKNOWN INDICATION
     Dosage: THE PATIENT RECEIVED ONE INJECTION ON 02-JAN-2012
     Route: 058
     Dates: start: 20120102

REACTIONS (2)
  - TESTICULAR ABSCESS [None]
  - STREPTOCOCCAL INFECTION [None]
